FAERS Safety Report 9825104 (Version 1)
Quarter: 2013Q4

REPORT INFORMATION
  Report Type: Spontaneous
  Country: US (occurrence: None)
  Receive Date: 20131031
  Receipt Date: 20131031
  Transmission Date: 20140711
  Serious: Yes (Other)
  Sender: FDA-Public Use
  Company Number: 2012AT000760

PATIENT
  Sex: Female

DRUGS (1)
  1. ISOSORBIDE DINITRATE [Suspect]
     Indication: DIAGNOSTIC PROCEDURE
     Route: 022
     Dates: start: 20120809, end: 20120809

REACTIONS (1)
  - Blood pressure decreased [None]
